FAERS Safety Report 20988746 (Version 2)
Quarter: 2022Q4

REPORT INFORMATION
  Report Type: Report from Study
  Country: US (occurrence: US)
  Receive Date: 20220621
  Receipt Date: 20221119
  Transmission Date: 20230112
  Serious: Yes (Other)
  Sender: FDA-Public Use
  Company Number: US-NOVARTISPH-NVSC2022US138532

PATIENT
  Sex: Female

DRUGS (1)
  1. ENTRESTO [Suspect]
     Active Substance: SACUBITRIL\VALSARTAN
     Indication: Product used for unknown indication
     Dosage: UNK, BID
     Route: 065

REACTIONS (5)
  - Macular degeneration [Unknown]
  - Head discomfort [Unknown]
  - Dyspnoea [Unknown]
  - Temperature intolerance [Unknown]
  - Blood pressure decreased [Unknown]
